FAERS Safety Report 8481577-6 (Version None)
Quarter: 2012Q3

REPORT INFORMATION
  Report Type: 
  Country: None (occurrence: None)
  Receive Date: 20120702
  Receipt Date: 20120625
  Transmission Date: 20120928
  Serious: Yes (Other)
  Sender: FDA-Public Use
  Company Number: US-BAYER-2012-063961

PATIENT
  Age: 20 Year
  Sex: Female

DRUGS (6)
  1. YAZ [Suspect]
  2. TRETINOIN [Concomitant]
     Dosage: 0.025%
  3. MINOCYCLINE HCL [Concomitant]
     Dosage: 100 MG, UNK
  4. OXYCODONE HCL AND ACETAMINOPHEN [Concomitant]
     Dosage: 5-325 MG
  5. CITALOPRAM HYDROBROMIDE [Concomitant]
     Dosage: 40 MG, UNK
  6. CITALOPRAM HYDROBROMIDE [Concomitant]
     Dosage: 20 MG, UNK

REACTIONS (1)
  - DEEP VEIN THROMBOSIS [None]
